FAERS Safety Report 4404770-8 (Version None)
Quarter: 2004Q3

REPORT INFORMATION
  Report Type: 
  Country: None (occurrence: None)
  Receive Date: 20040720
  Receipt Date: 20040713
  Transmission Date: 20050211
  Serious: Yes (Hospitalization)
  Sender: FDA-Public Use
  Company Number: 365067

PATIENT
  Age: 75 Year
  Sex: Female

DRUGS (2)
  1. NEOTIGASON (ACITRETIN) 25MG [Suspect]
     Indication: PSORIASIS
     Dosage: 25MG DAILY; ORAL
     Route: 048
     Dates: start: 20030615, end: 20031218
  2. KLACID (CLARITHROMYCIN) 500 MG [Suspect]
     Indication: BREAST DISORDER
     Dosage: 500 MG DAILY; ORAL
     Route: 048
     Dates: start: 20031215, end: 20031218

REACTIONS (8)
  - CAPILLARY LEAK SYNDROME [None]
  - FEELING HOT [None]
  - LEUKOCYTOSIS [None]
  - LIVER DISORDER [None]
  - RASH ERYTHEMATOUS [None]
  - RASH PUSTULAR [None]
  - RENAL IMPAIRMENT [None]
  - SKIN LESION [None]
